FAERS Safety Report 8183579-6 (Version None)
Quarter: 2012Q1

REPORT INFORMATION
  Report Type: 
  Country: None (occurrence: None)
  Receive Date: 20120305
  Receipt Date: 20120229
  Transmission Date: 20120608
  Serious: Yes (Death)
  Sender: FDA-Public Use
  Company Number: CZ-B.I. PHARMACEUTICALS,INC./RIDGEFIELD-2012-AP-00185AP

PATIENT
  Sex: Female

DRUGS (2)
  1. NOVALGIN [Concomitant]
     Dosage: 500 MG
  2. PRADAXA [Suspect]
     Indication: THROMBOSIS PROPHYLAXIS
     Route: 048
     Dates: start: 20120216, end: 20120224

REACTIONS (1)
  - CEREBRAL HAEMORRHAGE [None]
